FAERS Safety Report 8723605 (Version 2)
Quarter: 2012Q4

REPORT INFORMATION
  Report Type: 
  Country: IE (occurrence: IE)
  Receive Date: 20120814
  Receipt Date: 20121002
  Transmission Date: 20130627
  Serious: Yes (Hospitalization)
  Sender: FDA-Public Use
  Company Number: IE-MERCK-1208IRL005087

PATIENT
  Age: 64 Year
  Sex: Female

DRUGS (8)
  1. JANUMET [Suspect]
     Indication: DIABETES MELLITUS
     Dosage: 50mg/1000mg
     Route: 048
  2. JANUMET [Suspect]
     Indication: HYPERTENSION
  3. RAMIPRIL [Suspect]
     Dosage: 10 mg, qd
     Route: 048
  4. LANSOPRAZOLE [Suspect]
     Dosage: 30 mg, UNK
  5. ASPIRIN [Concomitant]
     Dosage: 75 mg, qd
  6. IDEOS [Concomitant]
  7. PROTELOS [Concomitant]
  8. GLICLAZIDE [Concomitant]
     Dosage: 90 mg, UNK

REACTIONS (2)
  - Pancreatic necrosis [Recovering/Resolving]
  - Pancreatitis [Recovering/Resolving]
